FAERS Safety Report 10334282 (Version 1)
Quarter: 2014Q3

REPORT INFORMATION
  Report Type: Spontaneous
  Country: US (occurrence: US)
  Receive Date: 20140723
  Receipt Date: 20140723
  Transmission Date: 20150326
  Serious: No
  Sender: FDA-Public Use
  Company Number: US-UNITED THERAPEUTICS-UTC-045996

PATIENT
  Age: 52 Year
  Sex: Female
  Weight: 56.78 kg

DRUGS (2)
  1. ADCIRCA [Concomitant]
     Active Substance: TADALAFIL
  2. REMODULIN [Suspect]
     Active Substance: TREPROSTINIL
     Dosage: 0.002 UG/KG/MIN
     Route: 058
     Dates: start: 20140228

REACTIONS (2)
  - Burning sensation mucosal [Unknown]
  - Dyspepsia [Unknown]

NARRATIVE: CASE EVENT DATE: 201402
